FAERS Safety Report 21503856 (Version 1)
Quarter: 2022Q4

REPORT INFORMATION
  Report Type: Spontaneous
  Country: US (occurrence: US)
  Receive Date: 20221025
  Receipt Date: 20221025
  Transmission Date: 20230113
  Serious: Yes (Other)
  Sender: FDA-Public Use
  Company Number: US-PFIZER INC-PV202200054444

PATIENT
  Age: 73 Year
  Sex: Male
  Weight: 104.3 kg

DRUGS (3)
  1. VYNDAMAX [Suspect]
     Active Substance: TAFAMIDIS
     Indication: Cardiac failure
     Dosage: 60 MG, 1X/DAY
     Dates: start: 20220831
  2. TORSEMIDE [Concomitant]
     Active Substance: TORSEMIDE
     Dosage: 20 MG, 1X/DAY
  3. METOPROLOL [Concomitant]
     Active Substance: METOPROLOL
     Dosage: 25 MG, 1X/DAY

REACTIONS (2)
  - Off label use [Unknown]
  - Drug ineffective for unapproved indication [Unknown]
